FAERS Safety Report 8024379-7 (Version None)
Quarter: 2012Q1

REPORT INFORMATION
  Report Type: 
  Country: None (occurrence: None)
  Receive Date: 20120105
  Receipt Date: 20120105
  Transmission Date: 20120608
  Serious: Yes (Hospitalization, Other)
  Sender: FDA-Public Use
  Company Number: None

PATIENT
  Sex: Female

DRUGS (1)
  1. CITALOPRAM HYDROBROMIDE [Suspect]
     Indication: ANTIDEPRESSANT THERAPY
     Dosage: 1 TABLET
     Route: 048
     Dates: start: 20090101, end: 20111106

REACTIONS (3)
  - BLINDNESS [None]
  - MIGRAINE [None]
  - ANGLE CLOSURE GLAUCOMA [None]
